FAERS Safety Report 6993288-4 (Version None)
Quarter: 2010Q3

REPORT INFORMATION
  Report Type: 
  Country: None (occurrence: None)
  Receive Date: 20100917
  Receipt Date: 20091203
  Transmission Date: 20110219
  Serious: No
  Sender: FDA-Public Use
  Company Number: US-ASTRAZENECA-2009SE30072

PATIENT
  Sex: Female

DRUGS (2)
  1. SEROQUEL XR [Suspect]
     Indication: ANXIETY
     Route: 048
     Dates: start: 20090801
  2. ZOLOFT [Concomitant]

REACTIONS (5)
  - ANXIETY [None]
  - DRUG DOSE OMISSION [None]
  - FEELING ABNORMAL [None]
  - HYPERSOMNIA [None]
  - INSOMNIA [None]
